FAERS Safety Report 7290615-8 (Version None)
Quarter: 2011Q1

REPORT INFORMATION
  Report Type: 
  Country: None (occurrence: None)
  Receive Date: 20110214
  Receipt Date: 20110207
  Transmission Date: 20110831
  Serious: No
  Sender: FDA-Public Use
  Company Number: CO-JNJFOC-20110103815

PATIENT
  Age: 24 Year
  Sex: Male

DRUGS (2)
  1. RISPERDAL CONSTA [Suspect]
     Indication: SCHIZOPHRENIA
     Dosage: EACH 15 DAYS
     Route: 030
  2. RISPERDAL CONSTA [Suspect]
     Dosage: EACH 15 DAYS
     Route: 030

REACTIONS (1)
  - AGGRESSION [None]
